FAERS Safety Report 5759788-X (Version None)
Quarter: 2008Q2

REPORT INFORMATION
  Report Type: 
  Country: None (occurrence: None)
  Receive Date: 20080605
  Receipt Date: 20080529
  Transmission Date: 20081010
  Serious: Yes (Death, Hospitalization)
  Sender: FDA-Public Use
  Company Number: B0523112A

PATIENT
  Age: 17 Year
  Sex: Female

DRUGS (7)
  1. ZOVIRAX [Suspect]
     Route: 042
     Dates: start: 20051213, end: 20051214
  2. ZYPREXA [Suspect]
     Indication: DELIRIUM
     Dosage: 10MG PER DAY
     Route: 048
     Dates: start: 20051208, end: 20051212
  3. TERCIAN [Suspect]
     Indication: DELIRIUM
     Dosage: 210DROP PER DAY
     Route: 048
     Dates: start: 20051206, end: 20051212
  4. DEPAKENE [Suspect]
     Indication: CONVULSION
     Dosage: 600MG PER DAY
     Route: 048
     Dates: start: 20051214
  5. RIVOTRIL [Suspect]
     Indication: DELIRIUM
     Dosage: 60DROP PER DAY
     Route: 048
     Dates: start: 20051207
  6. TRANXENE [Suspect]
     Indication: NEUROLEPTIC MALIGNANT SYNDROME
     Route: 042
     Dates: start: 20051213
  7. ATARAX [Suspect]
     Indication: NEUROLEPTIC MALIGNANT SYNDROME
     Route: 042
     Dates: start: 20051212

REACTIONS (7)
  - ARRHYTHMIA [None]
  - CARDIAC OUTPUT DECREASED [None]
  - CONVULSION [None]
  - ELECTROENCEPHALOGRAM ABNORMAL [None]
  - ENCEPHALOPATHY [None]
  - GENERAL PHYSICAL HEALTH DETERIORATION [None]
  - RESPIRATORY DISTRESS [None]
